FAERS Safety Report 8907519 (Version 1)
Quarter: 2012Q4

REPORT INFORMATION
  Report Type: 
  Country: MX (occurrence: MX)
  Receive Date: 20121113
  Receipt Date: 20121113
  Transmission Date: 20130627
  Serious: Yes (Death)
  Sender: FDA-Public Use
  Company Number: MX-PFIZER INC-2012282851

PATIENT
  Age: 37 Year

DRUGS (3)
  1. CELEBREX [Suspect]
     Route: 048
  2. CIPRO XL [Concomitant]
     Dosage: UNK
  3. CIPRO XL [Concomitant]
     Dosage: 500 mg, UNK
     Route: 048

REACTIONS (1)
  - Death [Fatal]
